FAERS Safety Report 4980158-6 (Version None)
Quarter: 2006Q2

REPORT INFORMATION
  Report Type: 
  Country: None (occurrence: None)
  Receive Date: 20060424
  Receipt Date: 20060412
  Transmission Date: 20061013
  Serious: Yes (Other)
  Sender: FDA-Public Use
  Company Number: US-JNJFOC-20060402837

PATIENT
  Sex: Male
  Weight: 90.72 kg

DRUGS (4)
  1. REMICADE [Suspect]
     Indication: RHEUMATOID ARTHRITIS
     Dosage: 273 MG/DOSE
     Route: 042
  2. MECLIZINE [Concomitant]
     Indication: DIZZINESS
  3. EFFEXOR [Concomitant]
  4. TYLENOL (CAPLET) [Concomitant]

REACTIONS (7)
  - APHASIA [None]
  - BLOOD PRESSURE ABNORMAL [None]
  - INFUSION RELATED REACTION [None]
  - PULSE ABSENT [None]
  - SKIN DISCOLOURATION [None]
  - UNRESPONSIVE TO PAIN STIMULI [None]
  - UNRESPONSIVE TO VERBAL STIMULI [None]
